FAERS Safety Report 4394258-5 (Version None)
Quarter: 2004Q3

REPORT INFORMATION
  Report Type: 
  Country: None (occurrence: None)
  Receive Date: 20040707
  Receipt Date: 20040626
  Transmission Date: 20050211
  Serious: Yes (Other)
  Sender: FDA-Public Use
  Company Number: 200413178BCC

PATIENT
  Age: 63 Year
  Sex: Male
  Weight: 81.6475 kg

DRUGS (5)
  1. ALEVE [Suspect]
     Dosage: 220 MG, ONCE, ORAL
     Route: 048
     Dates: start: 20040625
  2. EXCEDRIN (MIGRAINE) [Suspect]
     Dosage: ORAL
     Route: 048
  3. AMILORIDE [Concomitant]
  4. SYNTHROID [Concomitant]
  5. ALLERGY SHOTS [Concomitant]

REACTIONS (4)
  - ABDOMINAL PAIN [None]
  - HEART RATE INCREASED [None]
  - RENAL PAIN [None]
  - STOMACH DISCOMFORT [None]
